FAERS Safety Report 4979437-8 (Version None)
Quarter: 2006Q2

REPORT INFORMATION
  Report Type: 
  Country: None (occurrence: None)
  Receive Date: 20060421
  Receipt Date: 20050517
  Transmission Date: 20061013
  Serious: Yes (Hospitalization)
  Sender: FDA-Public Use
  Company Number: US-MERCK-0505USA02113

PATIENT
  Age: 76 Year
  Sex: Female
  Weight: 80 kg

DRUGS (2)
  1. VIOXX [Suspect]
     Indication: ARTHRITIS
     Route: 048
     Dates: start: 20020101, end: 20040601
  2. TYLENOL (CAPLET) [Concomitant]
     Route: 065

REACTIONS (10)
  - ARTHRALGIA [None]
  - DEEP VEIN THROMBOSIS [None]
  - DIABETES MELLITUS [None]
  - EXOSTOSIS [None]
  - HYPERTENSION [None]
  - INJURY [None]
  - PAIN IN EXTREMITY [None]
  - TENDONITIS [None]
  - THROMBOSIS [None]
  - UPPER LIMB FRACTURE [None]
